FAERS Safety Report 18208014 (Version 1)
Quarter: 2020Q3

REPORT INFORMATION
  Report Type: Report from Study
  Country: PA (occurrence: PA)
  Receive Date: 20200828
  Receipt Date: 20200828
  Transmission Date: 20201103
  Serious: Yes (Life-Threatening, Hospitalization, Other)
  Sender: FDA-Public Use
  Company Number: PA-ASTRAZENECA-2020SF06753

PATIENT
  Age: 23 Year
  Sex: Female

DRUGS (3)
  1. NEXIUM [Suspect]
     Active Substance: ESOMEPRAZOLE MAGNESIUM
     Indication: SECRETION DISCHARGE
     Route: 048
     Dates: start: 20200723, end: 20200724
  2. NEXIUM [Suspect]
     Active Substance: ESOMEPRAZOLE MAGNESIUM
     Indication: PRODUCTIVE COUGH
     Route: 048
     Dates: start: 20200723, end: 20200724
  3. NEXIUM [Suspect]
     Active Substance: ESOMEPRAZOLE MAGNESIUM
     Indication: NASAL CONGESTION
     Route: 048
     Dates: start: 20200723, end: 20200724

REACTIONS (5)
  - Dyspnoea [Unknown]
  - Off label use [Unknown]
  - Swelling [Unknown]
  - Drug hypersensitivity [Unknown]
  - Respiratory tract inflammation [Unknown]

NARRATIVE: CASE EVENT DATE: 20200723
